FAERS Safety Report 18950629 (Version 1)
Quarter: 2021Q1

REPORT INFORMATION
  Report Type: Spontaneous
  Country: US (occurrence: US)
  Receive Date: 20210228
  Receipt Date: 20210228
  Transmission Date: 20210420
  Serious: No
  Sender: FDA-Public Use
  Company Number: US-JNJFOC-20210243406

PATIENT
  Age: 7 Decade
  Sex: Female
  Weight: 59.93 kg

DRUGS (1)
  1. IMODIUM MULTI?SYMPTOM RELIEF [Suspect]
     Active Substance: DIMETHICONE\LOPERAMIDE HYDROCHLORIDE
     Indication: DIARRHOEA
     Dosage: 1 TABLET ONCE
     Route: 048
     Dates: start: 20210222, end: 20210222

REACTIONS (1)
  - Expired product administered [Unknown]
